FAERS Safety Report 7713308-9 (Version None)
Quarter: 2011Q3

REPORT INFORMATION
  Report Type: 
  Country: None (occurrence: None)
  Receive Date: 20110826
  Receipt Date: 20110818
  Transmission Date: 20111222
  Serious: Yes (Other)
  Sender: FDA-Public Use
  Company Number: US-BAYER-2011-027786

PATIENT
  Age: 30 Year
  Sex: Female
  Weight: 66.213 kg

DRUGS (13)
  1. HYDROCODONE W/HOMATROPINE [Concomitant]
  2. YASMIN [Suspect]
     Indication: CONTRACEPTION
     Dosage: UNK, QD
     Route: 048
     Dates: start: 20010701, end: 20071101
  3. HYDROCODONE BITARTRATE AND ACETAMINOPHEN [Concomitant]
  4. LEVAQUIN [Concomitant]
     Dosage: 500 MG, UNK
  5. YASMIN [Suspect]
     Indication: PREMENSTRUAL SYNDROME
  6. YASMIN [Suspect]
     Indication: ENDOMETRIOSIS
  7. YAZ [Suspect]
     Indication: PREMENSTRUAL SYNDROME
  8. YAZ [Suspect]
     Indication: ENDOMETRIOSIS
  9. YAZ [Suspect]
     Indication: CONTRACEPTION
     Dosage: UNK
     Dates: start: 20071101, end: 20080601
  10. AZITHROMYCIN [Concomitant]
     Dosage: 250 MG, UNK
  11. FLUCONAZOLE [Concomitant]
     Dosage: 150 MG, UNK
  12. FAMOTIDINE [Concomitant]
     Dosage: 40 MG, UNK
  13. PROMETHAZINE [Concomitant]
     Dosage: 25 MG, UNK

REACTIONS (8)
  - GENERAL PHYSICAL HEALTH DETERIORATION [None]
  - PAIN [None]
  - CHOLECYSTITIS CHRONIC [None]
  - ANXIETY [None]
  - ANHEDONIA [None]
  - GALLBLADDER INJURY [None]
  - INJURY [None]
  - EMOTIONAL DISTRESS [None]
